FAERS Safety Report 11289433 (Version 1)
Quarter: 2015Q3

REPORT INFORMATION
  Report Type: Not Available
  Country: US (occurrence: US)
  Receive Date: 20150721
  Receipt Date: 20150721
  Transmission Date: 20151125
  Serious: No
  Sender: FDA-Public Use
  Company Number: US-GALDERMA-US15002435

PATIENT
  Age: 72 Year
  Sex: Male

DRUGS (5)
  1. PSORCON (DIFLORASONE DIACETATE)TOPICAL [Concomitant]
     Indication: DERMATOSIS
     Route: 061
  2. ORACEA [Suspect]
     Active Substance: DOXYCYCLINE
     Indication: DERMATOSIS
     Route: 048
     Dates: start: 2015, end: 2015
  3. PRILOSEC (OMEPRAZOLE) [Concomitant]
     Active Substance: OMEPRAZOLE MAGNESIUM
     Route: 061
  4. ORACEA [Suspect]
     Active Substance: DOXYCYCLINE
     Indication: PRODUCT USE ISSUE
     Dosage: 40 MG
     Route: 048
     Dates: start: 201504
  5. SIMVASTATIN. [Concomitant]
     Active Substance: SIMVASTATIN
     Indication: BLOOD CHOLESTEROL
     Route: 048

REACTIONS (2)
  - Product use issue [Not Recovered/Not Resolved]
  - Skin infection [Recovered/Resolved]

NARRATIVE: CASE EVENT DATE: 2015
